FAERS Safety Report 4751290-7 (Version None)
Quarter: 2005Q3

REPORT INFORMATION
  Report Type: 
  Country: None (occurrence: None)
  Receive Date: 20050824
  Receipt Date: 20050819
  Transmission Date: 20060218
  Serious: Yes (Death, Hospitalization)
  Sender: FDA-Public Use
  Company Number: 2005CG01409

PATIENT
  Age: 85 Year
  Sex: Male

DRUGS (10)
  1. CASODEX [Suspect]
     Indication: PROSTATE CANCER METASTATIC
     Route: 048
     Dates: start: 20050316, end: 20050725
  2. NEXIUM [Suspect]
     Indication: GASTRODUODENAL ULCER
     Route: 048
     Dates: start: 20040101, end: 20050725
  3. CORDARONE [Suspect]
     Dosage: FIVE TIMES A WEEK
     Route: 048
     Dates: start: 20050316, end: 20050725
  4. PRAVASTATIN [Suspect]
     Indication: HYPERCHOLESTEROLAEMIA
     Route: 048
     Dates: end: 20050725
  5. DEROXAT [Suspect]
     Route: 048
     Dates: start: 20040101
  6. JOSIR [Suspect]
     Indication: BENIGN PROSTATIC HYPERPLASIA
     Route: 048
     Dates: end: 20050725
  7. ADANCOR [Suspect]
  8. TARDYFERON [Suspect]
     Dates: start: 20050523
  9. PREVISCAN [Concomitant]
     Indication: ISCHAEMIC STROKE
     Dates: start: 20041001
  10. PREVISCAN [Concomitant]
     Indication: PULMONARY EMBOLISM
     Dates: start: 20041001

REACTIONS (7)
  - ANGIONEUROTIC OEDEMA [None]
  - BRONCHOSPASM [None]
  - CONVULSION [None]
  - CYANOSIS [None]
  - DYSPNOEA [None]
  - HYPOCOMPLEMENTAEMIA [None]
  - RESPIRATORY ARREST [None]
